FAERS Safety Report 6979885-0 (Version None)
Quarter: 2010Q3

REPORT INFORMATION
  Report Type: 
  Country: None (occurrence: None)
  Receive Date: 20100914
  Receipt Date: 20100907
  Transmission Date: 20110219
  Serious: No
  Sender: FDA-Public Use
  Company Number: 2008BI033755

PATIENT
  Age: 35 Year
  Sex: Female

DRUGS (2)
  1. TYSABRI [Suspect]
     Indication: MULTIPLE SCLEROSIS
     Route: 042
     Dates: start: 20080703, end: 20090201
  2. TYSABRI [Suspect]
     Route: 042
     Dates: start: 20090201

REACTIONS (10)
  - ABSCESS LIMB [None]
  - CRYING [None]
  - DEPRESSION [None]
  - DRUG INTOLERANCE [None]
  - FAECAL INCONTINENCE [None]
  - FALL [None]
  - SUBCUTANEOUS ABSCESS [None]
  - URINARY INCONTINENCE [None]
  - VISION BLURRED [None]
  - VITAMIN D DEFICIENCY [None]
